FAERS Safety Report 13962492 (Version 1)
Quarter: 2017Q3

REPORT INFORMATION
  Report Type: Report from Study
  Country: None (occurrence: BR)
  Receive Date: 20170913
  Receipt Date: 20170913
  Transmission Date: 20171128
  Serious: Yes (Other)
  Sender: FDA-Public Use
  Company Number: BR-ABBVIE-17K-020-2094447-00

PATIENT
  Age: 52 Year
  Sex: Male
  Weight: 70 kg

DRUGS (1)
  1. HUMIRA [Suspect]
     Active Substance: ADALIMUMAB
     Indication: PSORIATIC ARTHROPATHY
     Route: 058
     Dates: start: 20120920

REACTIONS (10)
  - Umbilical hernia [Unknown]
  - Hepatic infection bacterial [Recovered/Resolved]
  - Weight decreased [Recovered/Resolved]
  - Cholecystectomy [Unknown]
  - Abdominal pain [Recovered/Resolved]
  - Hypophagia [Recovered/Resolved]
  - Incision site pain [Not Recovered/Not Resolved]
  - Pyrexia [Recovered/Resolved]
  - Hepatic cyst [Recovered/Resolved]
  - Pain [Recovered/Resolved]

NARRATIVE: CASE EVENT DATE: 201609
